FAERS Safety Report 7173026-5 (Version None)
Quarter: 2010Q4

REPORT INFORMATION
  Report Type: 
  Country: None (occurrence: None)
  Receive Date: 20101219
  Receipt Date: 20100218
  Transmission Date: 20110411
  Serious: Yes (Other)
  Sender: FDA-Public Use
  Company Number: US-AMGEN-KDL393884

PATIENT

DRUGS (2)
  1. ENBREL [Suspect]
     Indication: PSORIATIC ARTHROPATHY
     Dosage: 50 MG, QWK
     Route: 058
     Dates: start: 20050215
  2. ENBREL [Suspect]
     Indication: PSORIASIS

REACTIONS (7)
  - CARPAL TUNNEL SYNDROME [None]
  - CATARACT [None]
  - COLONIC POLYP [None]
  - DIVERTICULITIS [None]
  - EXOSTOSIS [None]
  - PSORIASIS [None]
  - PSORIATIC ARTHROPATHY [None]
